FAERS Safety Report 16656586 (Version 3)
Quarter: 2020Q1

REPORT INFORMATION
  Report Type: Spontaneous
  Country: US (occurrence: US)
  Receive Date: 20190801
  Receipt Date: 20200115
  Transmission Date: 20200409
  Serious: Yes (Death)
  Sender: FDA-Public Use
  Company Number: US-PFIZER INC-2019326806

PATIENT
  Age: 76 Year
  Sex: Female
  Weight: 64.4 kg

DRUGS (1)
  1. SUTENT [Suspect]
     Active Substance: SUNITINIB MALATE
     Indication: PANCREATIC NEUROENDOCRINE TUMOUR
     Dosage: 37.5 MG, DAILY
     Route: 048
     Dates: start: 20190513, end: 20190519

REACTIONS (4)
  - Neoplasm progression [Fatal]
  - Vomiting [Unknown]
  - Diarrhoea [Unknown]
  - Dehydration [Unknown]

NARRATIVE: CASE EVENT DATE: 20190628
